FAERS Safety Report 8801799 (Version 1)
Quarter: 2012Q4

REPORT INFORMATION
  Report Type: 
  Country: AU (occurrence: AU)
  Receive Date: 20120921
  Receipt Date: 20120921
  Transmission Date: 20130627
  Serious: Yes (Hospitalization)
  Sender: FDA-Public Use
  Company Number: AU-ELI_LILLY_AND_COMPANY-AU201209004566

PATIENT
  Age: 45 Year
  Sex: Female

DRUGS (2)
  1. CYMBALTA [Suspect]
     Dosage: 60 mg, unknown
     Dates: start: 201203
  2. CONTRACEPTIVES [Concomitant]
     Dosage: UNK, unknown

REACTIONS (2)
  - Surgery [Recovered/Resolved]
  - Fatigue [Recovered/Resolved]
